FAERS Safety Report 9889078 (Version 1)
Quarter: 2014Q1

REPORT INFORMATION
  Report Type: Spontaneous
  Country: US (occurrence: US)
  Receive Date: 20140211
  Receipt Date: 20140211
  Transmission Date: 20141002
  Serious: Yes (Hospitalization, Other)
  Sender: FDA-Public Use
  Company Number: US-SA-2014SA015863

PATIENT
  Age: 57 Year
  Sex: Male

DRUGS (6)
  1. LEVEMIR [Suspect]
     Dosage: DOSE:100 UNIT(S)
     Route: 065
     Dates: start: 20140206
  2. SOLOSTAR [Concomitant]
     Indication: TYPE 2 DIABETES MELLITUS
  3. ALL OTHER THERAPEUTIC PRODUCTS [Concomitant]
  4. ALL OTHER THERAPEUTIC PRODUCTS [Concomitant]
  5. LANTUS SOLOSTAR [Suspect]
     Indication: TYPE 2 DIABETES MELLITUS
     Dosage: DOSE:100 UNIT(S)
     Route: 051
  6. METFORMIN [Suspect]
     Route: 065

REACTIONS (5)
  - Overweight [Unknown]
  - Dizziness [Unknown]
  - Loss of consciousness [Unknown]
  - Urine odour abnormal [Unknown]
  - Fall [Unknown]
